FAERS Safety Report 17773157 (Version 1)
Quarter: 2020Q2

REPORT INFORMATION
  Report Type: Spontaneous
  Country: US (occurrence: US)
  Receive Date: 20200512
  Receipt Date: 20200512
  Transmission Date: 20200714
  Serious: No
  Sender: FDA-Public Use
  Company Number: US-BAUSCH-BL-2020-011410

PATIENT
  Sex: Female

DRUGS (4)
  1. ALTRENO [Suspect]
     Active Substance: TRETINOIN
     Indication: SKIN COSMETIC PROCEDURE
     Dosage: STARTED APPROXIMATELY ON 18/DEC/2019, ON THE FACE IN THE EVENINGS
     Route: 061
     Dates: start: 201912, end: 2020
  2. ALTRENO [Suspect]
     Active Substance: TRETINOIN
     Indication: PRODUCT USE IN UNAPPROVED INDICATION
  3. VELTIN [Concomitant]
     Active Substance: CLINDAMYCIN PHOSPHATE\TRETINOIN
     Indication: ACNE
     Dosage: SINCE APPROXIMATELY AGE 17 TO APPROXIMATELY 18/DEC/2019
     Dates: end: 201912
  4. VELTIN [Concomitant]
     Active Substance: CLINDAMYCIN PHOSPHATE\TRETINOIN
     Indication: SKIN COSMETIC PROCEDURE
     Dosage: SWITCHED BACK TO USING ZELTIN
     Dates: start: 2020

REACTIONS (3)
  - Product prescribing error [Unknown]
  - Acne [Recovered/Resolved]
  - Product use in unapproved indication [Unknown]

NARRATIVE: CASE EVENT DATE: 2019
